FAERS Safety Report 17273449 (Version 1)
Quarter: 2020Q1

REPORT INFORMATION
  Report Type: Spontaneous
  Country: US (occurrence: US)
  Receive Date: 20191224
  Receipt Date: 20191224
  Transmission Date: 20200409
  Serious: Yes (Disabling)
  Sender: FDA-Public Use
  Company Number: None

PATIENT
  Age: 27 Year
  Sex: Male
  Weight: 88 kg

DRUGS (1)
  1. CLOBAZAM 30MG TABLET [Suspect]
     Active Substance: CLOBAZAM
     Indication: EPILEPSY
     Dosage: ?          QUANTITY:2.5 MG MILLIGRAM(S);?
     Route: 048
     Dates: start: 201611, end: 201611

REACTIONS (9)
  - Vomiting [None]
  - Hypersensitivity [None]
  - Injury [None]
  - Rash [None]
  - Condition aggravated [None]
  - Product substitution issue [None]
  - Ill-defined disorder [None]
  - Nausea [None]
  - Seizure [None]

NARRATIVE: CASE EVENT DATE: 20161128
